FAERS Safety Report 4748072-9 (Version None)
Quarter: 2005Q3

REPORT INFORMATION
  Report Type: 
  Country: None (occurrence: None)
  Receive Date: 20050818
  Receipt Date: 20050811
  Transmission Date: 20060218
  Serious: Yes (Hospitalization)
  Sender: FDA-Public Use
  Company Number: US-GLAXOSMITHKLINE-B0390595A

PATIENT
  Age: 63 Year
  Sex: Male
  Weight: 76.5 kg

DRUGS (11)
  1. BLINDED TRIAL MEDICATION [Suspect]
     Indication: CARDIAC FAILURE
     Route: 042
     Dates: start: 20050505
  2. LANOXIN [Suspect]
     Dosage: .25MG PER DAY
     Dates: start: 20000707
  3. CARVEDILOL [Concomitant]
     Dosage: 3.12MG PER DAY
     Dates: start: 20031009
  4. LISINOPRIL [Concomitant]
     Indication: HYPERTENSION
     Dosage: 5MG PER DAY
     Dates: start: 20030926
  5. ACIPHEX [Concomitant]
     Dosage: 20MG PER DAY
     Dates: start: 20030926
  6. LIPITOR [Concomitant]
     Dosage: 10MG PER DAY
     Dates: start: 20040124
  7. AMIODARONE HCL [Concomitant]
     Indication: DRUG USE FOR UNKNOWN INDICATION
     Dosage: 200MG PER DAY
     Dates: start: 20000707
  8. MAGNESIUM [Concomitant]
     Indication: NUTRITIONAL SUPPORT
     Dates: start: 20040701
  9. POTASSIUM CHLORIDE [Concomitant]
     Indication: NUTRITIONAL SUPPORT
     Dosage: 20MEQ PER DAY
     Dates: start: 20000707
  10. TORSEMIDE [Concomitant]
     Dosage: 100MG PER DAY
     Dates: start: 20050401
  11. TIMOPTIC [Concomitant]
     Indication: GLAUCOMA
     Dates: start: 20000707

REACTIONS (2)
  - TRANSIENT ISCHAEMIC ATTACK [None]
  - VISION BLURRED [None]
